FAERS Safety Report 22384197 (Version 2)
Quarter: 2023Q2

REPORT INFORMATION
  Report Type: Spontaneous
  Country: FR (occurrence: FR)
  Receive Date: 20230530
  Receipt Date: 20230612
  Transmission Date: 20230722
  Serious: Yes (Other)
  Sender: FDA-Public Use
  Company Number: None

PATIENT
  Age: 35 Year
  Sex: Female
  Weight: 90 kg

DRUGS (4)
  1. ABILIFY [Suspect]
     Active Substance: ARIPIPRAZOLE
     Indication: Schizophrenia
     Dosage: 1 DF, QD
     Route: 048
     Dates: start: 20220211
  2. ZOPICLONE [Suspect]
     Active Substance: ZOPICLONE
     Indication: Schizophrenia
     Dosage: 7.5 MG, QD
     Route: 048
     Dates: start: 20220211
  3. BROMAZEPAM [Suspect]
     Active Substance: BROMAZEPAM
     Indication: Schizophrenia
     Dosage: 6 MG, QD
     Route: 048
     Dates: start: 20220211
  4. LAMICTAL [Suspect]
     Active Substance: LAMOTRIGINE
     Indication: Schizophrenia
     Dosage: 300 MG, QD (100 MG X 3 PER DAY)
     Route: 048
     Dates: start: 20220211

REACTIONS (1)
  - Gestational diabetes [Recovered/Resolved]

NARRATIVE: CASE EVENT DATE: 20220901
